FAERS Safety Report 21169998 (Version 2)
Quarter: 2023Q2

REPORT INFORMATION
  Report Type: Report from Study
  Country: GB (occurrence: GB)
  Receive Date: 20220804
  Receipt Date: 20230508
  Transmission Date: 20230721
  Serious: Yes (Death, Hospitalization, Other)
  Sender: FDA-Public Use
  Company Number: GB-CELLTRION INC.-2022GB010001

PATIENT

DRUGS (2)
  1. INFLIXIMAB [Suspect]
     Active Substance: INFLIXIMAB
     Indication: Rheumatoid arthritis
     Dosage: UNK UNK, 3/WEEK
     Route: 058
     Dates: start: 20200608
  2. METHOTREXATE [Concomitant]
     Active Substance: METHOTREXATE
     Route: 065

REACTIONS (10)
  - Lower motor neurone lesion [Fatal]
  - Chronic obstructive pulmonary disease [Fatal]
  - Dysphonia [Fatal]
  - Pneumonia aspiration [Fatal]
  - Pulmonary fibrosis [Fatal]
  - Asthenia [Fatal]
  - Dysphagia [Fatal]
  - Weight decreased [Fatal]
  - Cough [Fatal]
  - Off label use [Unknown]

NARRATIVE: CASE EVENT DATE: 20211109
